FAERS Safety Report 24845085 (Version 7)
Quarter: 2025Q1

REPORT INFORMATION
  Report Type: Spontaneous
  Country: US (occurrence: US)
  Receive Date: 20250115
  Receipt Date: 20250304
  Transmission Date: 20250408
  Serious: Yes (Other)
  Sender: Day One Biopharmaceuticals
  Company Number: US-Day One Biopharmaceuticals Inc.-2025US000037

PATIENT

DRUGS (6)
  1. OJEMDA [Suspect]
     Active Substance: TOVORAFENIB
     Indication: Glioma
     Dosage: 6 ML, QW
     Route: 048
     Dates: start: 20250123, end: 2025
  2. OJEMDA [Suspect]
     Active Substance: TOVORAFENIB
     Indication: Brain neoplasm malignant
     Dosage: 5 ML, QW
     Route: 065
     Dates: start: 2025, end: 2025
  3. OJEMDA [Suspect]
     Active Substance: TOVORAFENIB
     Dosage: 174 MG (7 ML), QW
     Route: 065
     Dates: start: 20241114, end: 20241226
  4. OJEMDA [Suspect]
     Active Substance: TOVORAFENIB
     Dosage: 150 MG (5 ML), QW
     Route: 065
     Dates: start: 20240815, end: 2024
  5. FAMOTIDINE [Suspect]
     Active Substance: FAMOTIDINE
     Indication: Product used for unknown indication
     Dosage: 0.4 MILLILITRE, BID
     Route: 065
     Dates: end: 202412
  6. BACTRIM [Concomitant]
     Active Substance: SULFAMETHOXAZOLE\TRIMETHOPRIM
     Indication: Product used for unknown indication
     Route: 065
     Dates: end: 202412

REACTIONS (6)
  - Product reconstitution quality issue [Unknown]
  - Alanine aminotransferase increased [Not Recovered/Not Resolved]
  - Aspartate aminotransferase increased [Not Recovered/Not Resolved]
  - Respiratory syncytial virus bronchiolitis [Not Recovered/Not Resolved]
  - COVID-19 [Unknown]
  - Adenovirus infection [Unknown]

NARRATIVE: CASE EVENT DATE: 20241201
